FAERS Safety Report 6929169-1 (Version None)
Quarter: 2010Q3

REPORT INFORMATION
  Report Type: 
  Country: None (occurrence: None)
  Receive Date: 20100813
  Receipt Date: 20100809
  Transmission Date: 20110219
  Serious: Yes (Death, Other)
  Sender: FDA-Public Use
  Company Number: 2010SP026348

PATIENT
  Age: 57 Year
  Sex: Male

DRUGS (2)
  1. PEG-INTRON [Suspect]
     Indication: HEPATITIS C
     Dosage: 150 MCG; QW; SC
     Route: 058
     Dates: start: 20100211
  2. REBETOL [Suspect]
     Indication: HEPATITIS C
     Dosage: 800 MG; BID;  PO
     Route: 048
     Dates: start: 20100211

REACTIONS (13)
  - CARDIAC ARREST [None]
  - HAEMATOCRIT DECREASED [None]
  - HAEMOGLOBIN DECREASED [None]
  - HAEMORRHAGE [None]
  - HEART RATE INCREASED [None]
  - HEPATIC CIRRHOSIS [None]
  - LOSS OF CONSCIOUSNESS [None]
  - OPEN WOUND [None]
  - PSORIASIS [None]
  - RED BLOOD CELL COUNT DECREASED [None]
  - SCAB [None]
  - SKIN PLAQUE [None]
  - WHITE BLOOD CELL COUNT DECREASED [None]
